FAERS Safety Report 10307485 (Version 1)
Quarter: 2014Q3

REPORT INFORMATION
  Report Type: Report from Study
  Country: IN (occurrence: IN)
  Receive Date: 20140716
  Receipt Date: 20140716
  Transmission Date: 20150326
  Serious: Yes (Death, Hospitalization)
  Sender: FDA-Public Use
  Company Number: PHHY2014IN086648

PATIENT
  Age: 72 Year
  Sex: Female

DRUGS (2)
  1. ACLASTA [Suspect]
     Active Substance: ZOLEDRONIC ACID
     Indication: OSTEOPOROSIS
     Dosage: 5/100,MG/ML, PER YEAR
     Route: 042
     Dates: start: 20130710
  2. CALCIUM                            /00241701/ [Concomitant]
     Dosage: UNK

REACTIONS (9)
  - Dysentery [Recovering/Resolving]
  - Ammonia increased [Unknown]
  - Urine abnormality [Not Recovered/Not Resolved]
  - Burning sensation [Unknown]
  - Cerebellar ischaemia [Not Recovered/Not Resolved]
  - Hypertension [Recovered/Resolved]
  - Oxygen saturation decreased [Not Recovered/Not Resolved]
  - Death [Fatal]
  - Mouth ulceration [Unknown]

NARRATIVE: CASE EVENT DATE: 20131226
